FAERS Safety Report 23889785 (Version 2)
Quarter: 2024Q2

REPORT INFORMATION
  Report Type: Spontaneous
  Country: AR (occurrence: AR)
  Receive Date: 20240523
  Receipt Date: 20240624
  Transmission Date: 20240716
  Serious: Yes (Other)
  Sender: FDA-Public Use
  Company Number: AR-002147023-NVSC2022AR210453

PATIENT
  Age: 69 Year
  Sex: Female

DRUGS (2)
  1. KISQALI [Suspect]
     Active Substance: RIBOCICLIB
     Indication: Breast cancer metastatic
     Dosage: 200 MG, TID (600 MG, QD)
     Route: 048
     Dates: start: 20191210
  2. ZOMETA [Suspect]
     Active Substance: ZOLEDRONIC ACID
     Indication: Product used for unknown indication
     Dosage: UNK
     Route: 065

REACTIONS (10)
  - Hip fracture [Unknown]
  - Upper limb fracture [Unknown]
  - Weight bearing difficulty [Unknown]
  - Dysstasia [Unknown]
  - Pain in extremity [Unknown]
  - Decreased immune responsiveness [Unknown]
  - Bone disorder [Unknown]
  - Inappropriate schedule of product administration [Unknown]
  - Drug ineffective [Unknown]
  - Influenza [Unknown]

NARRATIVE: CASE EVENT DATE: 20220902
